FAERS Safety Report 8381008-0 (Version None)
Quarter: 2012Q2

REPORT INFORMATION
  Report Type: 
  Country: None (occurrence: None)
  Receive Date: 20120523
  Receipt Date: 20120508
  Transmission Date: 20120825
  Serious: Yes (Other)
  Sender: FDA-Public Use
  Company Number: CHPA2012US010794

PATIENT
  Sex: Female

DRUGS (2)
  1. EXCEDRIN EXTRA STRENGTH TABLETS [Suspect]
     Dosage: UNK, QD
     Route: 048
     Dates: start: 19820101
  2. ANTIDEPRESSANTS [Suspect]

REACTIONS (6)
  - ABNORMAL BEHAVIOUR [None]
  - OVERDOSE [None]
  - BLOOD DISORDER [None]
  - GASTRIC ULCER [None]
  - DRUG DEPENDENCE [None]
  - INCORRECT DRUG ADMINISTRATION DURATION [None]
